FAERS Safety Report 10102081 (Version 1)
Quarter: 2014Q2

REPORT INFORMATION
  Report Type: Spontaneous
  Country: FR (occurrence: FR)
  Receive Date: 20140424
  Receipt Date: 20140424
  Transmission Date: 20141212
  Serious: Yes (Hospitalization, Other)
  Sender: FDA-Public Use
  Company Number: FR-BIAL, PORTELA + CA S.A.-BIAL-02405

PATIENT
  Age: 12 Year
  Sex: Female

DRUGS (2)
  1. ZEBINIX (ESLICARBAZEPINE ACETATE) [Suspect]
     Indication: EPILEPSY
     Dosage: UNK
     Route: 048
     Dates: start: 2014
  2. TEGRETOL LP [Suspect]
     Indication: EPILEPSY
     Dosage: UNK
     Route: 048

REACTIONS (4)
  - Intestinal obstruction [Unknown]
  - Convulsion [Unknown]
  - Hyponatraemia [Unknown]
  - Off label use [None]
